FAERS Safety Report 6538440-7 (Version None)
Quarter: 2010Q1

REPORT INFORMATION
  Report Type: 
  Country: None (occurrence: None)
  Receive Date: 20100110
  Receipt Date: 20100104
  Transmission Date: 20100710
  Serious: Yes (Death)
  Sender: FDA-Public Use
  Company Number: 2009SP042172

PATIENT
  Sex: Male

DRUGS (4)
  1. PEG-INTRON [Suspect]
     Indication: HEPATITIS C
     Dates: start: 20090402, end: 20090822
  2. REBETOL [Suspect]
     Indication: HEPATITIS C
     Dates: start: 20090402, end: 20090822
  3. METHADONE [Concomitant]
  4. MIRTAZAPINE [Concomitant]

REACTIONS (1)
  - DEATH [None]
